FAERS Safety Report 5471892-2 (Version None)
Quarter: 2007Q3

REPORT INFORMATION
  Report Type: 
  Country: None (occurrence: None)
  Receive Date: 20070928
  Receipt Date: 20070727
  Transmission Date: 20080115
  Serious: No
  Sender: FDA-Public Use
  Company Number: US-BRISTOL-MYERS SQUIBB COMPANY-13860531

PATIENT
  Age: 37 Year
  Sex: Female
  Weight: 124 kg

DRUGS (7)
  1. DEFINITY [Suspect]
     Indication: CARDIAC STRESS TEST
     Route: 040
     Dates: start: 20070727
  2. GLUCOPHAGE [Concomitant]
  3. CHANTIX [Concomitant]
  4. ASPIRIN [Concomitant]
  5. HYDROCHLOROTHIAZIDE [Concomitant]
  6. ATENOLOL [Concomitant]
  7. LORTAB [Concomitant]

REACTIONS (1)
  - BACK PAIN [None]
